FAERS Safety Report 6162379-2 (Version None)
Quarter: 2009Q2

REPORT INFORMATION
  Report Type: 
  Country: None (occurrence: None)
  Receive Date: 20090421
  Receipt Date: 20090406
  Transmission Date: 20091009
  Serious: Yes (Other)
  Sender: FDA-Public Use
  Company Number: GB-PFIZER INC-2009193511

PATIENT

DRUGS (4)
  1. SOMATROPIN [Suspect]
     Indication: HYPOPITUITARISM
     Dosage: 0.6 IU, 1X/DAY
     Dates: start: 20050201, end: 20060801
  2. INSULIN [Concomitant]
     Indication: TYPE 1 DIABETES MELLITUS
     Route: 040
  3. LEVOTHYROXINE [Concomitant]
  4. SIMVASTATIN [Concomitant]

REACTIONS (1)
  - DIABETIC RETINOPATHY [None]
